FAERS Safety Report 13960232 (Version 1)
Quarter: 2017Q3

REPORT INFORMATION
  Report Type: Spontaneous
  Country: JP (occurrence: JP)
  Receive Date: 20170912
  Receipt Date: 20170912
  Transmission Date: 20171128
  Serious: Yes (Other)
  Sender: FDA-Public Use
  Company Number: JP-PFIZER INC-2017384587

PATIENT
  Age: 8 Decade
  Sex: Female

DRUGS (2)
  1. REVATIO [Suspect]
     Active Substance: SILDENAFIL CITRATE
     Indication: PULMONARY HYPERTENSION
     Dosage: UNK
  2. OPSUMIT [Suspect]
     Active Substance: MACITENTAN
     Indication: PULMONARY HYPERTENSION
     Dosage: UNK

REACTIONS (5)
  - Chest X-ray abnormal [Unknown]
  - Lung infiltration [Unknown]
  - Pleural effusion [Not Recovered/Not Resolved]
  - Respiratory disorder [Recovering/Resolving]
  - Oxygen saturation abnormal [Recovering/Resolving]
